FAERS Safety Report 18392338 (Version 1)
Quarter: 2020Q4

REPORT INFORMATION
  Report Type: Spontaneous
  Country: US (occurrence: US)
  Receive Date: 20201016
  Receipt Date: 20201016
  Transmission Date: 20210114
  Serious: Yes (Other)
  Sender: FDA-Public Use
  Company Number: US-MYLANLABS-2020M1087309

PATIENT
  Age: 25 Year
  Sex: Female

DRUGS (5)
  1. ITRACONAZOLE. [Suspect]
     Active Substance: ITRACONAZOLE
     Dosage: 300 MILLIGRAM, 0.5 DAY , FOR 6 TO 12 MONTHS
     Route: 048
  2. VANCOMYCIN [Suspect]
     Active Substance: VANCOMYCIN
     Indication: ANTIBIOTIC THERAPY
     Dosage: 1000 MILLIGRAM, QD, 22 DAYS
     Route: 042
  3. ITRACONAZOLE. [Suspect]
     Active Substance: ITRACONAZOLE
     Indication: BLASTOMYCOSIS
     Dosage: 300 MILLIGRAM, TID, T.I.D. FOR 3DAYS
     Route: 048
  4. AMPHOTERICIN B. [Suspect]
     Active Substance: AMPHOTERICIN B
     Indication: BLASTOMYCOSIS
     Dosage: UNKNOWN
     Route: 042
  5. ZOSYN [Suspect]
     Active Substance: PIPERACILLIN SODIUM\TAZOBACTAM SODIUM
     Indication: ANTIBIOTIC THERAPY
     Dosage: 4.5 GRAM, Q8H, 22 DAYS
     Route: 042

REACTIONS (2)
  - Acute kidney injury [Unknown]
  - Maternal exposure during pregnancy [Unknown]
